FAERS Safety Report 17351944 (Version 1)
Quarter: 2020Q1

REPORT INFORMATION
  Report Type: Spontaneous
  Country: FR (occurrence: FR)
  Receive Date: 20200130
  Receipt Date: 20200130
  Transmission Date: 20200409
  Serious: Yes (Death)
  Sender: FDA-Public Use
  Company Number: FR-B.I. PHARMACEUTICALS,INC./RIDGEFIELD-2020-12-004889

PATIENT
  Age: 77 Year
  Sex: Male
  Weight: 110 kg

DRUGS (7)
  1. MICARDIS [Suspect]
     Active Substance: TELMISARTAN
     Indication: HYPERTENSION
     Route: 048
     Dates: end: 20190206
  2. LEVOTHYROX [Suspect]
     Active Substance: LEVOTHYROXINE
     Indication: HYPOTHYROIDISM
     Route: 048
  3. APRANAX [NAPROXEN SODIUM] [Suspect]
     Active Substance: NAPROXEN SODIUM
     Indication: CARPAL TUNNEL SYNDROME
     Route: 048
     Dates: start: 2018, end: 201902
  4. SOTALOL [SOTALOL HYDROCHLORIDE] [Suspect]
     Active Substance: SOTALOL HYDROCHLORIDE
     Indication: HYPERTENSION
     Route: 048
     Dates: end: 20190206
  5. PREVISCAN [FLUINDIONE] [Suspect]
     Active Substance: FLUINDIONE
     Indication: ATRIAL FIBRILLATION
     Route: 048
     Dates: end: 20190205
  6. HYDROXYCARBAMIDE [Suspect]
     Active Substance: HYDROXYUREA
     Indication: ESSENTIAL THROMBOCYTHAEMIA
     Route: 048
     Dates: end: 20190205
  7. URAPIDIL [Suspect]
     Active Substance: URAPIDIL
     Indication: HYPERTENSION
     Route: 048
     Dates: end: 201902

REACTIONS (2)
  - Rectal haemorrhage [Fatal]
  - Shock haemorrhagic [Fatal]

NARRATIVE: CASE EVENT DATE: 20190205
